FAERS Safety Report 9303456 (Version 1)
Quarter: 2013Q2

REPORT INFORMATION
  Report Type: Spontaneous
  Country: US (occurrence: US)
  Receive Date: 20130522
  Receipt Date: 20130522
  Transmission Date: 20140414
  Serious: No
  Sender: FDA-Public Use
  Company Number: US-BAYER-2013-062222

PATIENT
  Age: 53 Year
  Sex: Female
  Weight: 63 kg

DRUGS (3)
  1. ALEVE CAPLET [Suspect]
     Indication: PAIN IN EXTREMITY
     Route: 048
  2. ALEVE CAPLET [Suspect]
     Indication: PAIN IN EXTREMITY
     Dosage: 7 DF, UNK
     Route: 048
     Dates: start: 20130513, end: 20130513
  3. ALEVE CAPLET [Suspect]
     Indication: PAIN IN EXTREMITY
     Dosage: 6 DF, UNK
     Route: 048
     Dates: start: 20130514, end: 20130514

REACTIONS (2)
  - Incorrect dose administered [None]
  - Incorrect dose administered [None]
